FAERS Safety Report 20355472 (Version 1)
Quarter: 2022Q1

REPORT INFORMATION
  Report Type: Spontaneous
  Country: US (occurrence: US)
  Receive Date: 20220120
  Receipt Date: 20220120
  Transmission Date: 20220423
  Serious: Yes (Other)
  Sender: FDA-Public Use
  Company Number: US-TYCO HEALTHCARE/MALLINCKRODT-T200701605

PATIENT
  Age: 60 Year
  Sex: Male
  Weight: 91.17 kg

DRUGS (20)
  1. ULTRA-TECHNEKOW DTE [Suspect]
     Active Substance: TECHNETIUM TC-99M SODIUM PERTECHNETATE
     Dosage: 26.5 MCI (STRESS STUDY)
     Route: 042
     Dates: start: 20070227, end: 20070227
  2. ULTRA-TECHNEKOW DTE [Suspect]
     Active Substance: TECHNETIUM TC-99M SODIUM PERTECHNETATE
     Dosage: 9 MCI, SINGLE (REST STUDY)
     Route: 042
     Dates: start: 20070227, end: 20070227
  3. CARDIOLITE [Concomitant]
     Active Substance: TECHNETIUM TC-99M SESTAMIBI
     Dosage: REST STUDY, SINGLE
     Route: 042
     Dates: start: 20070227, end: 20070227
  4. CARDIOLITE [Concomitant]
     Active Substance: TECHNETIUM TC-99M SESTAMIBI
     Dosage: STRESS STUDY, SINGLE
     Route: 042
     Dates: start: 20070227, end: 20070227
  5. PERSANTINE [Concomitant]
     Active Substance: DIPYRIDAMOLE
     Dosage: 53 MG, SINGLE
     Route: 042
     Dates: start: 20070227, end: 20070227
  6. AMINOPHYLLINE [Concomitant]
     Active Substance: AMINOPHYLLINE
     Dosage: 200 MG, SINGLE
     Route: 042
     Dates: start: 20070227, end: 20070227
  7. METFORMIN [Concomitant]
     Active Substance: METFORMIN HYDROCHLORIDE
     Dosage: 1000 MG, BID
     Route: 048
  8. SERTRALINE [Concomitant]
     Active Substance: SERTRALINE HYDROCHLORIDE
     Dosage: 150 MG, QD
     Route: 048
  9. SIMVASTATIN [Concomitant]
     Active Substance: SIMVASTATIN
     Dosage: 40 MG, QD
     Route: 048
  10. FUROSEMIDE [Concomitant]
     Active Substance: FUROSEMIDE
     Dosage: 40 MG, QD
     Route: 048
  11. ALLOPURINOL [Concomitant]
     Active Substance: ALLOPURINOL
     Dosage: 300 MG, QD
     Route: 048
  12. LISINOPRIL [Concomitant]
     Active Substance: LISINOPRIL
     Dosage: 20 MG, QD
     Route: 048
  13. OXYBUTYNIN [Concomitant]
     Active Substance: OXYBUTYNIN
     Dosage: 5 MG, QD
     Route: 048
  14. PIROXICAM [Concomitant]
     Active Substance: PIROXICAM
     Dosage: 20 MG, QD
     Route: 048
  15. GLIPIZIDE [Concomitant]
     Active Substance: GLIPIZIDE
     Dosage: 5 MG, QD
     Route: 048
  16. GEMFIBROZIL [Concomitant]
     Active Substance: GEMFIBROZIL
     Dosage: 600 MG, BID
     Route: 048
  17. GABAPENTIN [Concomitant]
     Active Substance: GABAPENTIN
     Dosage: 600 MG, TID
     Route: 048
  18. COREG [Concomitant]
     Active Substance: CARVEDILOL
     Dosage: 12.5 MG, QD
     Route: 048
  19. DIGOXIN [Concomitant]
     Active Substance: DIGOXIN
     Route: 048
  20. ASPIRIN [Concomitant]
     Active Substance: ASPIRIN
     Dosage: 325 MG, QD
     Route: 048

REACTIONS (8)
  - Kidney infection [Recovered/Resolved]
  - Dyspnoea [Recovered/Resolved]
  - Pain in extremity [Recovered/Resolved]
  - Chills [Recovered/Resolved]
  - Pyrexia [Recovered/Resolved]
  - Cough [Unknown]
  - Nausea [Recovered/Resolved]
  - Vomiting [Recovered/Resolved]

NARRATIVE: CASE EVENT DATE: 20070101
